FAERS Safety Report 18411039 (Version 4)
Quarter: 2021Q2

REPORT INFORMATION
  Report Type: Spontaneous
  Country: US (occurrence: US)
  Receive Date: 20201021
  Receipt Date: 20210526
  Transmission Date: 20210717
  Serious: No
  Sender: FDA-Public Use
  Company Number: US-PFIZER INC-2020407617

PATIENT
  Age: 46 Year
  Sex: Male

DRUGS (2)
  1. LYRICA [Suspect]
     Active Substance: PREGABALIN
     Dosage: 1 DF, 2X/DAY
  2. LYRICA [Suspect]
     Active Substance: PREGABALIN
     Dosage: 150 MG, 1 CAPSULE TID (THREE TIMES A DAY)
     Route: 048

REACTIONS (6)
  - Product prescribing error [Unknown]
  - Hypokinesia [Unknown]
  - Gastric disorder [Unknown]
  - Dehydration [Unknown]
  - Illness [Unknown]
  - Decreased appetite [Unknown]
